FAERS Safety Report 4479405-9 (Version None)
Quarter: 2004Q4

REPORT INFORMATION
  Report Type: 
  Country: None (occurrence: None)
  Receive Date: 20041020
  Receipt Date: 20040903
  Transmission Date: 20050328
  Serious: Yes (Hospitalization)
  Sender: FDA-Public Use
  Company Number: FR-BRISTOL-MYERS SQUIBB COMPANY-12692273

PATIENT
  Age: 65 Year
  Sex: Female

DRUGS (20)
  1. SKENAN PROL RELEASE GRAN CAPS 30 MG [Suspect]
     Indication: SCIATICA
     Route: 048
     Dates: start: 20040715, end: 20040716
  2. APROVEL TABS [Suspect]
     Route: 048
     Dates: start: 20040628, end: 20040717
  3. BI-PROFENID [Suspect]
     Route: 048
     Dates: start: 20040628, end: 20040717
  4. TERCIAN [Suspect]
     Route: 048
     Dates: start: 20040628, end: 20040717
  5. NOCTAMID [Suspect]
     Route: 048
     Dates: start: 20040716
  6. LERCAN [Suspect]
     Route: 048
     Dates: start: 20040708, end: 20040715
  7. MYOLASTAN [Concomitant]
     Route: 048
     Dates: end: 20040715
  8. URBANYL [Concomitant]
     Route: 048
     Dates: end: 20040715
  9. NEURONTIN [Concomitant]
     Route: 048
  10. TOPALGIC [Concomitant]
     Dates: end: 20040715
  11. MOPRAL [Concomitant]
  12. LAROXYL [Concomitant]
  13. DEROXAT [Concomitant]
  14. PERFALGAN [Concomitant]
  15. RIVOTRIL [Concomitant]
     Dates: end: 20040715
  16. LOVENOX [Concomitant]
  17. BISOPROLOL FUMARATE [Concomitant]
  18. LEVOTHYROX [Concomitant]
  19. DITROPAN [Concomitant]
  20. ALDALIX [Concomitant]

REACTIONS (9)
  - BRADYCARDIA [None]
  - BRADYPNOEA [None]
  - HYPERKALAEMIA [None]
  - HYPERTENSION [None]
  - HYPOTENSION [None]
  - MIOSIS [None]
  - RENAL FAILURE ACUTE [None]
  - RESPIRATORY TRACT CONGESTION [None]
  - SOMNOLENCE [None]
